FAERS Safety Report 24872639 (Version 3)
Quarter: 2025Q1

REPORT INFORMATION
  Report Type: Spontaneous
  Country: DE (occurrence: DE)
  Receive Date: 20250122
  Receipt Date: 20250211
  Transmission Date: 20250408
  Serious: Yes (Hospitalization, Other)
  Sender: AUROBINDO
  Company Number: DE-MLMSERVICE-20250106-PI334689-00111-1

PATIENT
  Age: 70 Year
  Sex: Male

DRUGS (5)
  1. VALGANCICLOVIR [Suspect]
     Active Substance: VALGANCICLOVIR
     Indication: Prophylaxis
     Route: 065
  2. VALGANCICLOVIR [Suspect]
     Active Substance: VALGANCICLOVIR
     Indication: Antiviral prophylaxis
  3. CINACALCET [Suspect]
     Active Substance: CINACALCET
     Indication: Hyperparathyroidism
     Route: 065
  4. SULFAMETHOXAZOLE\TRIMETHOPRIM [Suspect]
     Active Substance: SULFAMETHOXAZOLE\TRIMETHOPRIM
     Indication: Prophylactic chemotherapy
     Route: 065
  5. SULFAMETHOXAZOLE\TRIMETHOPRIM [Suspect]
     Active Substance: SULFAMETHOXAZOLE\TRIMETHOPRIM
     Indication: Antibiotic prophylaxis

REACTIONS (12)
  - Interstitial lung disease [Unknown]
  - Pneumocystis jirovecii pneumonia [Unknown]
  - Myelodysplastic syndrome with single lineage dysplasia [Unknown]
  - Myelosuppression [Unknown]
  - Condition aggravated [Unknown]
  - Severe acute respiratory syndrome [Unknown]
  - Drug ineffective [Unknown]
  - Hypercalcaemia [Unknown]
  - Hypophosphataemia [Unknown]
  - Blood parathyroid hormone increased [Unknown]
  - Hyperparathyroidism tertiary [Unknown]
  - COVID-19 [Recovered/Resolved]
